FAERS Safety Report 5488439-7 (Version None)
Quarter: 2007Q4

REPORT INFORMATION
  Report Type: 
  Country: None (occurrence: None)
  Receive Date: 20071017
  Receipt Date: 20071002
  Transmission Date: 20080405
  Serious: Yes (Congenital Anomaly)
  Sender: FDA-Public Use
  Company Number: US-ROCHE-513168

PATIENT
  Sex: Male
  Weight: 2.7 kg

DRUGS (6)
  1. SAQUINAVIR [Suspect]
     Indication: HIV INFECTION
     Dates: start: 20020523
  2. RITONAVIR [Suspect]
     Indication: HIV INFECTION
     Dates: start: 20070212
  3. 3TC [Suspect]
     Indication: HIV INFECTION
     Dates: start: 20020212
  4. AZT [Suspect]
     Indication: HIV INFECTION
     Dates: start: 20020212
  5. LOPINAVIR [Suspect]
     Indication: HIV INFECTION
     Dates: start: 20020212
  6. AZT [Suspect]
     Dates: start: 20020606, end: 20020620

REACTIONS (4)
  - CEREBRAL VENTRICLE DILATATION [None]
  - CONGENITAL TOXOPLASMOSIS [None]
  - HEPATOSPLENOMEGALY [None]
  - SPLENOMEGALY [None]
